FAERS Safety Report 4583997-9 (Version None)
Quarter: 2005Q1

REPORT INFORMATION
  Report Type: 
  Country: None (occurrence: None)
  Receive Date: 20050216
  Receipt Date: 20050210
  Transmission Date: 20050727
  Serious: Yes (Disabling)
  Sender: FDA-Public Use
  Company Number: US-MERCK-0502USA01273

PATIENT
  Age: 67 Year
  Sex: Male

DRUGS (3)
  1. ZETIA [Suspect]
     Indication: HYPERCHOLESTEROLAEMIA
     Route: 048
     Dates: start: 20050203, end: 20050203
  2. LISINOPRIL [Concomitant]
     Route: 065
  3. METOPROLOL [Concomitant]
     Route: 065

REACTIONS (1)
  - PAIN IN EXTREMITY [None]
